FAERS Safety Report 6099946-0 (Version None)
Quarter: 2009Q1

REPORT INFORMATION
  Report Type: 
  Country: None (occurrence: None)
  Receive Date: 20090227
  Receipt Date: 20090227
  Transmission Date: 20090719
  Serious: Yes (Other)
  Sender: FDA-Public Use
  Company Number: None

PATIENT
  Sex: Female
  Weight: 72.5755 kg

DRUGS (1)
  1. GABAPENTIN [Suspect]
     Dosage: 300MG 4 TIMES DAILY ORAL
     Route: 048
     Dates: start: 20080802

REACTIONS (1)
  - DIZZINESS [None]
